FAERS Safety Report 7507675-9 (Version None)
Quarter: 2011Q2

REPORT INFORMATION
  Report Type: 
  Country: None (occurrence: None)
  Receive Date: 20110527
  Receipt Date: 20110519
  Transmission Date: 20111010
  Serious: Yes (Hospitalization)
  Sender: FDA-Public Use
  Company Number: US-BIOGENIDEC-2011BI019043

PATIENT
  Age: 44 Year
  Sex: Female
  Weight: 63 kg

DRUGS (20)
  1. ALLEGRA [Concomitant]
     Indication: ASTHMA
     Route: 048
  2. ALPHAGAN P [Concomitant]
     Route: 047
  3. ALTACE [Concomitant]
     Indication: HYPERTENSION
     Route: 048
  4. CALCIUM GLUCONATE [Concomitant]
  5. PROVIGIL [Concomitant]
     Indication: FATIGUE
     Route: 048
  6. IMITREX [Concomitant]
     Indication: MIGRAINE
     Route: 048
  7. KLONOPIN [Concomitant]
     Route: 048
  8. COLACE [Concomitant]
     Route: 048
  9. PROAIR HFA [Concomitant]
     Indication: ASTHMA
     Route: 055
  10. SINGULAIR [Concomitant]
     Indication: ASTHMA
     Route: 048
  11. DEPAKOTE [Concomitant]
     Indication: CONVULSION
     Route: 048
  12. FERROUS SULFATE TAB [Concomitant]
     Route: 048
  13. CALCIUM GLUCONATE [Concomitant]
  14. PRILOSEC [Concomitant]
     Indication: PROPHYLAXIS
     Route: 048
  15. BACLOFEN [Concomitant]
     Indication: MUSCLE SPASTICITY
     Route: 048
  16. KEPPRA [Concomitant]
     Indication: CONVULSION
     Route: 048
  17. XALATAN [Concomitant]
     Route: 047
  18. NORVASC [Concomitant]
     Indication: HYPERTENSION
     Route: 048
  19. TYSABRI [Suspect]
     Indication: MULTIPLE SCLEROSIS
     Route: 042
     Dates: start: 20071210
  20. PROVIGIL [Concomitant]
     Route: 048

REACTIONS (1)
  - PARTIAL SEIZURES [None]
